FAERS Safety Report 6525993-8 (Version None)
Quarter: 2010Q1

REPORT INFORMATION
  Report Type: 
  Country: None (occurrence: None)
  Receive Date: 20100104
  Receipt Date: 20091228
  Transmission Date: 20100710
  Serious: Yes (Death, Hospitalization)
  Sender: FDA-Public Use
  Company Number: US-ROCHE-677226

PATIENT
  Age: 64 Year
  Sex: Male
  Weight: 89.5 kg

DRUGS (3)
  1. BEVACIZUMAB [Suspect]
     Indication: GLIOBLASTOMA MULTIFORME
     Dosage: LAST DOSE ON 11 DEC 09.
     Route: 042
     Dates: start: 20091002
  2. BAY 43-9006 [Suspect]
     Indication: GLIOBLASTOMA MULTIFORME
     Dosage: LAST DOSE ON 19 DEC 09.
     Route: 048
     Dates: start: 20091002
  3. DALTEPARIN [Suspect]
     Indication: DRUG USE FOR UNKNOWN INDICATION
     Route: 065

REACTIONS (1)
  - DEATH [None]
